FAERS Safety Report 5978724-4 (Version None)
Quarter: 2008Q4

REPORT INFORMATION
  Report Type: 
  Country: None (occurrence: None)
  Receive Date: 20081204
  Receipt Date: 20081125
  Transmission Date: 20090506
  Serious: Yes (Hospitalization)
  Sender: FDA-Public Use
  Company Number: JP-ROCHE-594749

PATIENT
  Age: 73 Year
  Sex: Female
  Weight: 46 kg

DRUGS (10)
  1. DENOSINE IV [Suspect]
     Indication: DRUG USE FOR UNKNOWN INDICATION
     Route: 041
     Dates: start: 20070921, end: 20071001
  2. CIPROFLOXACIN [Suspect]
     Indication: DRUG USE FOR UNKNOWN INDICATION
     Route: 051
     Dates: start: 20070927, end: 20071001
  3. MICAFUNGIN [Concomitant]
     Route: 041
     Dates: start: 20070921, end: 20070927
  4. SULFAMETHOXAZOLE AND TRIMETHOPRIM [Concomitant]
     Dates: start: 20070923, end: 20071001
  5. VORICONAZOLE [Concomitant]
     Route: 041
     Dates: start: 20070901, end: 20071001
  6. PANIPENEM [Concomitant]
     Dosage: DRUG REPORTED AS PANIPENEM_BETAMIPRON.
     Route: 041
     Dates: start: 20070927, end: 20071001
  7. MEROPENEM TRIHYDRATE [Concomitant]
     Route: 041
     Dates: start: 20070101
  8. PREDNISOLONE [Concomitant]
     Dates: start: 20070720
  9. PREDNISOLONE [Concomitant]
  10. PREDNISOLONE [Concomitant]

REACTIONS (1)
  - LUNG DISORDER [None]
